FAERS Safety Report 6712789-7 (Version None)
Quarter: 2010Q2

REPORT INFORMATION
  Report Type: 
  Country: None (occurrence: None)
  Receive Date: 20100506
  Receipt Date: 20100429
  Transmission Date: 20101027
  Serious: Yes (Hospitalization)
  Sender: FDA-Public Use
  Company Number: A0857298A

PATIENT
  Sex: Female

DRUGS (1)
  1. ARZERRA [Suspect]
     Dosage: 300MG SINGLE DOSE
     Route: 042
     Dates: start: 20100401

REACTIONS (3)
  - DEHYDRATION [None]
  - RASH [None]
  - TUMOUR LYSIS SYNDROME [None]
